FAERS Safety Report 16902434 (Version 1)
Quarter: 2019Q4

REPORT INFORMATION
  Report Type: Spontaneous
  Country: IT (occurrence: IT)
  Receive Date: 20191010
  Receipt Date: 20191010
  Transmission Date: 20200122
  Serious: Yes (Other)
  Sender: FDA-Public Use
  Company Number: IT-HIKMA PHARMACEUTICALS USA INC.-IT-H14001-19-49304

PATIENT
  Age: 60 Year
  Sex: Male

DRUGS (1)
  1. ONDANSETRONE HIKMA [Suspect]
     Active Substance: ONDANSETRON
     Indication: VOMITING PROJECTILE
     Dosage: ()
     Route: 042

REACTIONS (2)
  - Eyelid oedema [Recovered/Resolved]
  - Conjunctival haemorrhage [Recovered/Resolved]

NARRATIVE: CASE EVENT DATE: 20190905
